FAERS Safety Report 10380974 (Version 1)
Quarter: 2014Q3

REPORT INFORMATION
  Report Type: Spontaneous
  Country: US (occurrence: None)
  Receive Date: 20140808
  Receipt Date: 20140808
  Transmission Date: 20150326
  Serious: Yes (Hospitalization)
  Sender: FDA-Public Use
  Company Number: 2014US00986

PATIENT
  Age: 40 Year
  Sex: Female

DRUGS (2)
  1. CARBOPLATIN. [Suspect]
     Active Substance: CARBOPLATIN
     Indication: CHOROID PLEXUS CARCINOMA
     Dosage: DAYS 1 AND 2
  2. ETOPOSIDE (ETOPOSIDE) [Suspect]
     Active Substance: ETOPOSIDE
     Indication: CHOROID PLEXUS CARCINOMA
     Dosage: ON DAYS 1 TO 5

REACTIONS (4)
  - Sepsis [None]
  - Blood culture positive [None]
  - Capnocytophaga test positive [None]
  - Neutrophil count decreased [None]
